FAERS Safety Report 5764972-5 (Version None)
Quarter: 2008Q2

REPORT INFORMATION
  Report Type: 
  Country: None (occurrence: None)
  Receive Date: 20080611
  Receipt Date: 20080606
  Transmission Date: 20081010
  Serious: Yes (Other)
  Sender: FDA-Public Use
  Company Number: B0524330A

PATIENT
  Age: 32 Year
  Sex: Male

DRUGS (1)
  1. AUGMENTIN '125' [Suspect]
     Indication: PERIANAL ABSCESS
     Route: 042
     Dates: start: 20080429, end: 20080429

REACTIONS (2)
  - BRONCHOSPASM [None]
  - TACHYCARDIA [None]
